FAERS Safety Report 10035244 (Version 1)
Quarter: 2014Q1

REPORT INFORMATION
  Report Type: Spontaneous
  Country: US (occurrence: US)
  Receive Date: 20140325
  Receipt Date: 20140325
  Transmission Date: 20141002
  Serious: Yes (Other)
  Sender: FDA-Public Use
  Company Number: US-TEVA-471194USA

PATIENT
  Age: 32 Year
  Sex: Female
  Weight: 55.84 kg

DRUGS (2)
  1. PLAN B ONE-STEP [Suspect]
     Indication: POST COITAL CONTRACEPTION
     Dosage: 1.5 MILLIGRAM DAILY;
     Route: 048
     Dates: start: 20140220, end: 20140220
  2. COD LIVER OIL [Concomitant]
     Indication: SUPPLEMENTATION THERAPY

REACTIONS (3)
  - Abortion induced [Recovered/Resolved]
  - Pregnancy after post coital contraception [Recovered/Resolved]
  - Drug ineffective [Recovered/Resolved]
